FAERS Safety Report 8313734 (Version 14)
Quarter: 2014Q2

REPORT INFORMATION
  Report Type: Report from Study
  Country: JP (occurrence: JP)
  Receive Date: 20111228
  Receipt Date: 20140613
  Transmission Date: 20141212
  Serious: Yes (Hospitalization)
  Sender: FDA-Public Use
  Company Number: PHHO2011JP020152

PATIENT
  Age: 37 Year
  Sex: Female
  Weight: 41.3 kg

DRUGS (19)
  1. FTY 720 [Suspect]
     Dosage: 0.5 MG, QD
     Route: 048
     Dates: start: 20080724, end: 20111226
  2. LIPOVAS [Concomitant]
     Indication: PROPHYLAXIS
     Dosage: 10 MG, UNK
     Route: 048
     Dates: start: 20090105, end: 20111226
  3. MUCOSTA [Concomitant]
     Indication: PROPHYLAXIS AGAINST GASTROINTESTINAL ULCER
     Dosage: 300 MG, UNK
     Route: 048
     Dates: start: 20080828, end: 20111226
  4. CATLEP [Concomitant]
     Indication: BACK PAIN
     Dosage: 3 DF, UNK
     Route: 062
     Dates: start: 20080710, end: 20111226
  5. URITOS [Concomitant]
     Dosage: 0.1 MG, UNK
     Route: 048
     Dates: start: 20080710, end: 20111214
  6. AMOBAN [Concomitant]
     Indication: INSOMNIA
     Dosage: 7.5 MG, UNK
     Route: 048
     Dates: start: 20100701, end: 20111215
  7. MAGMITT KENEI [Concomitant]
     Indication: CONSTIPATION
     Dosage: 990 MG, UNK
     Route: 048
     Dates: start: 20110701, end: 20111214
  8. LOXONIN [Concomitant]
     Indication: HEADACHE
     Dosage: 180 MG, UNK
     Route: 048
     Dates: start: 20080828, end: 20111226
  9. NAUZELIN [Concomitant]
     Indication: NAUSEA
     Dosage: 30 MG, UNK
     Route: 048
     Dates: start: 20110929, end: 20111226
  10. TAKEPRON [Concomitant]
     Indication: GASTRIC ULCER
     Dosage: 30 MG, UNK
     Route: 048
     Dates: start: 20110929, end: 20111207
  11. DEPAS [Concomitant]
     Indication: INSOMNIA
     Dosage: 1.5 MG, UNK
     Route: 048
     Dates: start: 20101011, end: 20111207
  12. MYONAL [Concomitant]
     Indication: INSOMNIA
     Dosage: 1.5 MG, UNK
     Route: 048
     Dates: start: 20101011, end: 20111207
  13. TERNELIN [Concomitant]
     Indication: MULTIPLE SCLEROSIS
     Dosage: 3 MG, UNK
     Route: 048
     Dates: start: 20111011, end: 20111207
  14. GASMOTIN [Concomitant]
     Dosage: 15 MG, UNK
     Route: 048
     Dates: start: 20120630
  15. ALLEGRA [Concomitant]
     Dosage: 120 MG, UNK
     Route: 048
     Dates: start: 20120603
  16. METHYCOBAL [Concomitant]
     Dosage: 1500 UG, UNK
     Route: 048
     Dates: start: 20120630
  17. BACTRAMIN [Concomitant]
     Dosage: 1 DF, UNK
     Route: 048
     Dates: start: 20120630
  18. VESICARE [Concomitant]
     Dosage: 10 MG, UNK
     Route: 048
     Dates: start: 20120630
  19. LENDORMIN [Concomitant]
     Dosage: 0.25 MG, UNK
     Route: 048
     Dates: start: 20120630

REACTIONS (1)
  - Diffuse large B-cell lymphoma [Not Recovered/Not Resolved]
